FAERS Safety Report 12436765 (Version 2)
Quarter: 2017Q1

REPORT INFORMATION
  Report Type: Report from Study
  Country: US (occurrence: US)
  Receive Date: 20160606
  Receipt Date: 20170310
  Transmission Date: 20170428
  Serious: No
  Sender: FDA-Public Use
  Company Number: US-AMGEN-USASL2016069655

PATIENT
  Age: 29 Year
  Sex: Female

DRUGS (3)
  1. ENBREL [Suspect]
     Active Substance: ETANERCEPT
     Indication: PSORIASIS
     Dosage: UNK UNK, QWK
     Route: 065
     Dates: end: 201603
  2. PREPLUS B12 [Concomitant]
     Dosage: 27 MG, QD
     Route: 048
     Dates: start: 20160318, end: 20170217
  3. FOLIC ACID. [Concomitant]
     Active Substance: FOLIC ACID
     Dosage: 1 MG, QD
     Route: 048
     Dates: start: 20160318, end: 20170217

REACTIONS (5)
  - Pruritus [Unknown]
  - Condition aggravated [Unknown]
  - Maternal exposure during pregnancy [Recovered/Resolved]
  - Arthralgia [Unknown]
  - Skin exfoliation [Unknown]

NARRATIVE: CASE EVENT DATE: 2016
